FAERS Safety Report 8080350-0 (Version None)
Quarter: 2012Q1

REPORT INFORMATION
  Report Type: 
  Country: None (occurrence: None)
  Receive Date: 20120130
  Receipt Date: 20120126
  Transmission Date: 20120608
  Serious: Yes (Hospitalization)
  Sender: FDA-Public Use
  Company Number: US-B.I. PHARMACEUTICALS,INC./RIDGEFIELD-2012-BP-01598BP

PATIENT
  Sex: Male

DRUGS (10)
  1. METFFORMIN HYDROCHLORIDE [Concomitant]
     Indication: TYPE 2 DIABETES MELLITUS
     Dates: start: 20010101
  2. CARTIA XT [Concomitant]
     Indication: ATRIAL FIBRILLATION
     Dates: start: 20010101
  3. ATENOLOL [Concomitant]
     Indication: HYPERTENSION
     Dates: start: 20010101
  4. TERAZOSIN HCL [Concomitant]
     Indication: BENIGN PROSTATIC HYPERPLASIA
     Dates: start: 20010101
  5. DIGOXIN [Concomitant]
     Indication: ATRIAL FIBRILLATION
     Dates: start: 20120101
  6. PRADAXA [Suspect]
     Indication: ATRIAL FIBRILLATION
     Dosage: 300 MG
     Route: 048
     Dates: start: 20110101, end: 20111201
  7. GLIMEPIRIDE [Concomitant]
     Indication: TYPE 2 DIABETES MELLITUS
     Dates: start: 20010101
  8. SPIRONOLACTONE [Concomitant]
     Indication: FLUID RETENTION
     Dates: start: 20010101
  9. RAMIPRIL [Concomitant]
     Indication: HYPERTENSION
     Dates: start: 20010101
  10. LIPITOR [Concomitant]
     Indication: BLOOD CHOLESTEROL INCREASED
     Dates: start: 20010101

REACTIONS (3)
  - PERICARDIAL EFFUSION [None]
  - COAGULATION TIME PROLONGED [None]
  - PLEURAL EFFUSION [None]
